FAERS Safety Report 4740353-8 (Version None)
Quarter: 2005Q3

REPORT INFORMATION
  Report Type: 
  Country: None (occurrence: None)
  Receive Date: 20050810
  Receipt Date: 20040706
  Transmission Date: 20060218
  Serious: No
  Sender: FDA-Public Use
  Company Number: US-GLAXOSMITHKLINE-A0521351A

PATIENT
  Sex: Male

DRUGS (2)
  1. PAXIL [Suspect]
     Indication: DRUG USE FOR UNKNOWN INDICATION
     Route: 065
     Dates: start: 19980617
  2. XANAX [Concomitant]
     Dosage: .25MG AT NIGHT
     Dates: start: 19980617

REACTIONS (2)
  - DRUG WITHDRAWAL SYNDROME [None]
  - SLEEP DISORDER [None]
